FAERS Safety Report 20014241 (Version 2)
Quarter: 2022Q2

REPORT INFORMATION
  Report Type: Spontaneous
  Country: US (occurrence: US)
  Receive Date: 20211029
  Receipt Date: 20220419
  Transmission Date: 20220720
  Serious: No
  Sender: FDA-Public Use
  Company Number: US-PFIZER INC-2021902777

PATIENT
  Age: 75 Year
  Sex: Female

DRUGS (1)
  1. XELJANZ XR [Suspect]
     Active Substance: TOFACITINIB CITRATE
     Dosage: 11 MG

REACTIONS (6)
  - Intentional dose omission [Unknown]
  - Immune system disorder [Unknown]
  - COVID-19 [Unknown]
  - Illness [Unknown]
  - Herpes zoster [Unknown]
  - Feeling abnormal [Unknown]
